FAERS Safety Report 7928089-3 (Version None)
Quarter: 2011Q4

REPORT INFORMATION
  Report Type: 
  Country: None (occurrence: None)
  Receive Date: 20111118
  Receipt Date: 20111111
  Transmission Date: 20120403
  Serious: Yes (Other)
  Sender: FDA-Public Use
  Company Number: JP-GLAXOSMITHKLINE-B0758880A

PATIENT
  Sex: Female

DRUGS (7)
  1. TOLEDOMIN [Concomitant]
     Indication: DEPRESSION
     Dosage: 25MG PER DAY
     Route: 048
     Dates: start: 20111014, end: 20111020
  2. DIHYDROERGOTAMINE MESYLATE [Concomitant]
     Indication: HYPERTENSION
     Route: 048
     Dates: end: 20111020
  3. LAMICTAL [Suspect]
     Dosage: 50MG PER DAY
     Route: 048
     Dates: start: 20111014, end: 20111020
  4. LENDORMIN [Concomitant]
     Indication: INSOMNIA
     Route: 048
  5. LITHIUM CARBONATE [Concomitant]
     Indication: BIPOLAR DISORDER
     Dosage: 200MG PER DAY
     Route: 048
  6. LAMICTAL [Suspect]
     Indication: BIPOLAR DISORDER
     Dosage: 25MG PER DAY
     Route: 048
     Dates: start: 20111007, end: 20111013
  7. ZOLOFT [Concomitant]
     Indication: DEPRESSION
     Dosage: 75MG PER DAY
     Route: 048
     Dates: start: 20110708, end: 20111020

REACTIONS (7)
  - ORAL PAIN [None]
  - PYREXIA [None]
  - LIP BLISTER [None]
  - RASH [None]
  - DRUG ERUPTION [None]
  - ORAL DISCOMFORT [None]
  - LYMPHADENOPATHY [None]
